FAERS Safety Report 18942661 (Version 1)
Quarter: 2021Q1

REPORT INFORMATION
  Report Type: Spontaneous
  Country: IT (occurrence: IT)
  Receive Date: 20210225
  Receipt Date: 20210225
  Transmission Date: 20210420
  Serious: Yes (Death, Hospitalization, Other)
  Sender: FDA-Public Use
  Company Number: IT-PURDUE-USA-2021-0217038

PATIENT
  Age: 50 Year
  Sex: Male

DRUGS (3)
  1. ALL?TRANS RETINOIC ACID [Suspect]
     Active Substance: TRETINOIN
     Indication: ACUTE PROMYELOCYTIC LEUKAEMIA
     Route: 065
  2. NON?PMN MORPHINE SULFATE [Suspect]
     Active Substance: MORPHINE SULFATE
     Indication: PAIN
     Dosage: 10 MG, UNK
     Route: 042
  3. PREDNISONE. [Suspect]
     Active Substance: PREDNISONE
     Indication: CHEMOTHERAPY SIDE EFFECT PROPHYLAXIS
     Route: 065

REACTIONS (5)
  - Disseminated intravascular coagulation [Fatal]
  - Subdural haematoma [Unknown]
  - Haemorrhage [Fatal]
  - Pain [Unknown]
  - Loss of consciousness [Unknown]
